FAERS Safety Report 6184033-3 (Version None)
Quarter: 2009Q2

REPORT INFORMATION
  Report Type: 
  Country: None (occurrence: None)
  Receive Date: 20090508
  Receipt Date: 20090428
  Transmission Date: 20091009
  Serious: Yes (Death, Other)
  Sender: FDA-Public Use
  Company Number: JP-BAYER-200910739BYL

PATIENT
  Age: 52 Year
  Sex: Male
  Weight: 57 kg

DRUGS (10)
  1. FLUDARA [Suspect]
     Indication: ACUTE LYMPHOCYTIC LEUKAEMIA
     Dosage: AS USED: 30 MG/M2  UNIT DOSE: 50 MG
     Route: 042
     Dates: start: 20080814, end: 20080819
  2. FLUDARA [Suspect]
     Dosage: AS USED: 2.5 MG  UNIT DOSE: 50 MG
     Route: 042
     Dates: start: 20081023, end: 20081028
  3. ALKERAN [Concomitant]
     Indication: ACUTE LYMPHOCYTIC LEUKAEMIA
     Dosage: AS USED: 40 MG/M2
     Route: 042
     Dates: start: 20080814, end: 20080816
  4. ALKERAN [Concomitant]
     Dosage: AS USED: 62.5 MG
     Route: 042
     Dates: start: 20081023, end: 20081024
  5. ALKERAN [Concomitant]
     Dosage: AS USED: 62.5 MG
     Route: 042
     Dates: start: 20081027, end: 20081027
  6. BUSULFEX [Concomitant]
     Indication: ACUTE LYMPHOCYTIC LEUKAEMIA
     Dosage: AS USED: 3.2 MG/KG
     Route: 042
     Dates: start: 20080817, end: 20080818
  7. CONCENTRATED RED CELLS [Concomitant]
     Indication: PACKED RED BLOOD CELL TRANSFUSION
     Route: 042
     Dates: start: 20080818, end: 20081116
  8. PLATELETS [Concomitant]
     Indication: PLATELET TRANSFUSION
     Route: 042
     Dates: start: 20080814, end: 20081121
  9. NOVANTRONE [Concomitant]
     Indication: CORD BLOOD TRANSPLANT THERAPY
     Dosage: TOTAL DAILY DOSE: 10 MG  UNIT DOSE: 10 MG
     Route: 042
     Dates: start: 20081009, end: 20081009
  10. NOVANTRONE [Concomitant]
     Dosage: TOTAL DAILY DOSE: 10 MG  UNIT DOSE: 10 MG
     Route: 042
     Dates: start: 20081017, end: 20081017

REACTIONS (5)
  - ACUTE GRAFT VERSUS HOST DISEASE [None]
  - CYTOMEGALOVIRUS VIRAEMIA [None]
  - HUMAN HERPESVIRUS 6 INFECTION [None]
  - INTERSTITIAL LUNG DISEASE [None]
  - SEPSIS [None]
